FAERS Safety Report 8877463 (Version 1)
Quarter: 2012Q4

REPORT INFORMATION
  Report Type: 
  Country: GB (occurrence: GB)
  Receive Date: 20121023
  Receipt Date: 20121023
  Transmission Date: 20130627
  Serious: Yes (Death, Hospitalization)
  Sender: FDA-Public Use
  Company Number: GB-MERCK-1210GBR009232

PATIENT
  Age: 38 Year
  Sex: Female

DRUGS (17)
  1. SIMVASTATIN [Suspect]
     Dosage: 40 mg, nocte
     Route: 048
  2. ZAPONEX [Suspect]
     Indication: SCHIZOPHRENIA
     Dosage: 800 mg, qd
     Route: 048
     Dates: start: 20081209
  3. ZAPONEX [Suspect]
     Dosage: 600 mg, UNK
  4. APIDRA [Concomitant]
  5. CHLORPHENAMINE [Concomitant]
     Dosage: 4 mg, every 4-6 hours
  6. DEPO-PROVERA [Concomitant]
  7. DIAZEPAM [Concomitant]
     Dosage: 5 mg, bid
  8. DIHYDROCODEINE [Concomitant]
     Dosage: 30 mg, every 4-6 hours
  9. FUROSEMIDE [Concomitant]
     Dosage: 20 mg, qam
     Dates: start: 20120730
  10. LANTUS [Concomitant]
  11. LEVOTHYROXINE SODIUM [Concomitant]
     Dosage: 25 Microgram, UNK
  12. LYMECYCLINE [Concomitant]
     Dosage: 408 mg, qd
  13. METFORMIN [Concomitant]
     Dosage: 500 mg, tid
  14. OMEPRAZOLE [Concomitant]
     Dosage: 200 mg, qd
  15. ACETAMINOPHEN [Concomitant]
  16. SERTRALINE HYDROCHLORIDE [Concomitant]
     Dosage: 100 mg, qd
  17. TAZOCIN [Concomitant]

REACTIONS (17)
  - Joint swelling [Not Recovered/Not Resolved]
  - Furuncle [Unknown]
  - Mass [Not Recovered/Not Resolved]
  - Condition aggravated [Not Recovered/Not Resolved]
  - Death [Fatal]
  - Electrocardiogram QT prolonged [Recovered/Resolved]
  - Emotional distress [Not Recovered/Not Resolved]
  - Endocarditis [Unknown]
  - Infection [Unknown]
  - Inflammatory marker increased [Unknown]
  - Arthralgia [Not Recovered/Not Resolved]
  - Lymphoma [Unknown]
  - Neutrophil count increased [Unknown]
  - Platelet count increased [Unknown]
  - Dyspnoea [Not Recovered/Not Resolved]
  - Malaise [Not Recovered/Not Resolved]
  - White blood cell count increased [Unknown]
